FAERS Safety Report 23536004 (Version 1)
Quarter: 2024Q1

REPORT INFORMATION
  Report Type: Other
  Country: FR (occurrence: FR)
  Receive Date: 20240219
  Receipt Date: 20240219
  Transmission Date: 20240410
  Serious: Yes (Hospitalization, Disabling, Other)
  Sender: FDA-Public Use
  Company Number: FR-THERAMEX-2023002551

PATIENT

DRUGS (43)
  1. TRAMADOL [Suspect]
     Active Substance: TRAMADOL\TRAMADOL HYDROCHLORIDE
     Indication: Pain
     Dosage: UNK
     Route: 065
     Dates: start: 20170404
  2. TRAMADOL [Suspect]
     Active Substance: TRAMADOL\TRAMADOL HYDROCHLORIDE
     Dosage: 2 DOSAGE FORM, QD
     Route: 065
     Dates: start: 20220414
  3. CYPROTERONE ACETATE [Suspect]
     Active Substance: CYPROTERONE ACETATE
     Indication: Product used for unknown indication
     Dosage: 50 MILLIGRAM
     Route: 065
     Dates: start: 20141222
  4. CYPROTERONE ACETATE [Suspect]
     Active Substance: CYPROTERONE ACETATE
     Dosage: 50 MILLIGRAM
     Route: 048
     Dates: start: 20140505
  5. CYPROTERONE ACETATE [Suspect]
     Active Substance: CYPROTERONE ACETATE
     Dosage: 50 MILLIGRAM
     Route: 048
     Dates: start: 20150307
  6. CYPROTERONE ACETATE [Suspect]
     Active Substance: CYPROTERONE ACETATE
     Dosage: 50 MILLIGRAM
     Route: 065
     Dates: start: 20140319
  7. NOMEGESTROL ACETATE [Suspect]
     Active Substance: NOMEGESTROL ACETATE
     Indication: Ovarian dysfunction
     Dosage: UNK
     Route: 048
     Dates: start: 19980128
  8. NOMEGESTROL ACETATE [Suspect]
     Active Substance: NOMEGESTROL ACETATE
     Indication: Ovarian cyst
  9. CYPROTERONE ACETATE [Suspect]
     Active Substance: CYPROTERONE ACETATE
     Indication: Product used for unknown indication
     Dosage: 50 MILLIGRAM
     Route: 048
     Dates: start: 20130109
  10. CYPROTERONE ACETATE [Suspect]
     Active Substance: CYPROTERONE ACETATE
     Dosage: 50 MILLIGRAM
     Route: 048
     Dates: start: 20131202
  11. CYPROTERONE ACETATE [Suspect]
     Active Substance: CYPROTERONE ACETATE
     Dosage: 50 MILLIGRAM
     Route: 048
     Dates: start: 20140319
  12. CYPROTERONE ACETATE [Suspect]
     Active Substance: CYPROTERONE ACETATE
     Dosage: 50 MILLIGRAM
     Route: 048
     Dates: start: 20140709
  13. CYPROTERONE ACETATE [Suspect]
     Active Substance: CYPROTERONE ACETATE
     Dosage: 50 MILLIGRAM
     Route: 048
     Dates: start: 20140331
  14. CYPROTERONE ACETATE [Suspect]
     Active Substance: CYPROTERONE ACETATE
     Dosage: 50 MILLIGRAM
     Route: 048
     Dates: start: 20150720
  15. CYPROTERONE ACETATE [Suspect]
     Active Substance: CYPROTERONE ACETATE
     Dosage: 50 MILLIGRAM
     Route: 048
     Dates: start: 20150420
  16. CYPROTERONE ACETATE [Suspect]
     Active Substance: CYPROTERONE ACETATE
     Dosage: 50 MILLIGRAM
     Route: 048
     Dates: start: 20160602
  17. CYPROTERONE ACETATE [Suspect]
     Active Substance: CYPROTERONE ACETATE
     Dosage: 50 MILLIGRAM
     Route: 048
     Dates: start: 20160711
  18. CYPROTERONE ACETATE [Suspect]
     Active Substance: CYPROTERONE ACETATE
     Indication: Product used for unknown indication
     Dosage: 50 MILLIGRAM
     Route: 048
     Dates: start: 20130109
  19. CYPROTERONE ACETATE [Suspect]
     Active Substance: CYPROTERONE ACETATE
     Dosage: 50 MILLIGRAM
     Route: 048
     Dates: start: 20130202
  20. CYPROTERONE ACETATE [Suspect]
     Active Substance: CYPROTERONE ACETATE
     Dosage: 50 MILLIGRAM
     Route: 048
     Dates: start: 20140319
  21. CYPROTERONE ACETATE [Suspect]
     Active Substance: CYPROTERONE ACETATE
     Dosage: 50 MILLIGRAM
     Route: 048
     Dates: start: 20141006
  22. CYPROTERONE ACETATE [Suspect]
     Active Substance: CYPROTERONE ACETATE
     Indication: Product used for unknown indication
     Dosage: UNK
     Route: 048
     Dates: start: 20010611
  23. CYPROTERONE ACETATE [Suspect]
     Active Substance: CYPROTERONE ACETATE
     Dosage: UNK
     Route: 048
     Dates: start: 20010921
  24. CYPROTERONE ACETATE [Suspect]
     Active Substance: CYPROTERONE ACETATE
     Dosage: UNK
     Route: 048
     Dates: start: 20020912
  25. CYPROTERONE ACETATE [Suspect]
     Active Substance: CYPROTERONE ACETATE
     Dosage: UNK
     Route: 048
     Dates: start: 20021011
  26. CYPROTERONE ACETATE [Suspect]
     Active Substance: CYPROTERONE ACETATE
     Dosage: 50 MILLIGRAM
     Route: 048
     Dates: start: 20080903
  27. CYPROTERONE ACETATE [Suspect]
     Active Substance: CYPROTERONE ACETATE
     Dosage: 50 MILLIGRAM
     Route: 048
     Dates: start: 20081001
  28. CYPROTERONE ACETATE [Suspect]
     Active Substance: CYPROTERONE ACETATE
     Dosage: 50 MILLIGRAM
     Route: 048
     Dates: start: 20081126
  29. CYPROTERONE ACETATE [Suspect]
     Active Substance: CYPROTERONE ACETATE
     Dosage: 50 MILLIGRAM
     Route: 048
     Dates: start: 20090218
  30. CYPROTERONE ACETATE [Suspect]
     Active Substance: CYPROTERONE ACETATE
     Dosage: 50 MILLIGRAM
     Route: 048
     Dates: start: 20090420
  31. CYPROTERONE ACETATE [Suspect]
     Active Substance: CYPROTERONE ACETATE
     Dosage: 50 MILLIGRAM
     Route: 048
     Dates: start: 20100217
  32. CYPROTERONE ACETATE [Suspect]
     Active Substance: CYPROTERONE ACETATE
     Dosage: 50 MILLIGRAM
     Route: 048
     Dates: start: 20100402
  33. CYPROTERONE ACETATE [Suspect]
     Active Substance: CYPROTERONE ACETATE
     Dosage: 50 MILLIGRAM
     Route: 048
     Dates: start: 20100726
  34. CYPROTERONE ACETATE [Suspect]
     Active Substance: CYPROTERONE ACETATE
     Dosage: 50 MILLIGRAM
     Route: 048
     Dates: start: 20100901
  35. CYPROTERONE ACETATE [Suspect]
     Active Substance: CYPROTERONE ACETATE
     Dosage: 50 MILLIGRAM
     Route: 048
     Dates: start: 20110328
  36. CYPROTERONE ACETATE [Suspect]
     Active Substance: CYPROTERONE ACETATE
     Dosage: 50 MILLIGRAM
     Route: 048
     Dates: start: 20110507
  37. CYPROTERONE ACETATE [Suspect]
     Active Substance: CYPROTERONE ACETATE
     Dosage: 50 MILLIGRAM
     Route: 048
     Dates: start: 20090318
  38. CYPROTERONE ACETATE [Suspect]
     Active Substance: CYPROTERONE ACETATE
     Dosage: 50 MILLIGRAM
     Route: 048
     Dates: start: 20081022
  39. CYPROTERONE ACETATE [Suspect]
     Active Substance: CYPROTERONE ACETATE
     Indication: Product used for unknown indication
     Dosage: UNK
     Route: 048
     Dates: start: 20130420
  40. CYPROTERONE ACETATE [Suspect]
     Active Substance: CYPROTERONE ACETATE
     Dosage: UNK
     Route: 048
     Dates: start: 20130816
  41. CYPROTERONE ACETATE [Suspect]
     Active Substance: CYPROTERONE ACETATE
     Dosage: UNK
     Route: 048
     Dates: start: 20131001
  42. CYPROTERONE ACETATE [Suspect]
     Active Substance: CYPROTERONE ACETATE
     Dosage: UNK
     Route: 065
     Dates: start: 20140319
  43. CYPROTERONE ACETATE [Suspect]
     Active Substance: CYPROTERONE ACETATE
     Dosage: UNK
     Route: 065
     Dates: start: 20141222

REACTIONS (33)
  - Meningioma [Recovered/Resolved]
  - Muscle atrophy [Unknown]
  - Back pain [Unknown]
  - Dehiscence [Unknown]
  - Facial wasting [Unknown]
  - Disability [Unknown]
  - Sick leave [Unknown]
  - Face oedema [Unknown]
  - Impaired work ability [Unknown]
  - Pain [Unknown]
  - Irritability [Not Recovered/Not Resolved]
  - Fatigue [Unknown]
  - Drug dependence [Unknown]
  - Headache [Unknown]
  - Insomnia [Unknown]
  - Disturbance in attention [Unknown]
  - Drug abuse [Unknown]
  - Disturbance in attention [Not Recovered/Not Resolved]
  - Back pain [Not Recovered/Not Resolved]
  - Poor quality sleep [Unknown]
  - Asthenia [Not Recovered/Not Resolved]
  - Arthralgia [Not Recovered/Not Resolved]
  - Hyperacusis [Unknown]
  - Apathy [Unknown]
  - Muscle atrophy [Unknown]
  - Libido decreased [Unknown]
  - Poor quality sleep [Unknown]
  - Peritoneal disorder [Unknown]
  - Depression [Unknown]
  - Hyperacusis [Unknown]
  - Fatigue [Not Recovered/Not Resolved]
  - Insomnia [Not Recovered/Not Resolved]
  - Headache [Not Recovered/Not Resolved]

NARRATIVE: CASE EVENT DATE: 20160101
